FAERS Safety Report 6478617-2 (Version None)
Quarter: 2009Q4

REPORT INFORMATION
  Report Type: 
  Country: None (occurrence: None)
  Receive Date: 20091202
  Receipt Date: 20091117
  Transmission Date: 20100525
  Serious: Yes (Other)
  Sender: FDA-Public Use
  Company Number: 8052842

PATIENT
  Age: 15 Year
  Sex: Male
  Weight: 30 kg

DRUGS (4)
  1. PREDNISOLONE [Suspect]
  2. CYCLOPHOSPHAMIDE [Suspect]
  3. DOXORUBICIN HCL [Suspect]
  4. VINCRISTINE [Suspect]

REACTIONS (4)
  - ANAEMIA [None]
  - DRUG TOXICITY [None]
  - ECONOMIC PROBLEM [None]
  - FACIAL PALSY [None]
